FAERS Safety Report 6039050-0 (Version None)
Quarter: 2009Q1

REPORT INFORMATION
  Report Type: 
  Country: None (occurrence: None)
  Receive Date: 20090115
  Receipt Date: 20090105
  Transmission Date: 20090719
  Serious: Yes (Death, Hospitalization, Other)
  Sender: FDA-Public Use
  Company Number: US-TYCO HEALTHCARE/MALLINCKRODT-T200900008

PATIENT
  Sex: Male
  Weight: 36.6 kg

DRUGS (4)
  1. OXYCODONE [Suspect]
     Dosage: UNK
  2. SUNITINIB [Suspect]
     Indication: SQUAMOUS CELL CARCINOMA
     Dosage: 37.5 MG, QD
     Route: 048
     Dates: start: 20080428, end: 20080523
  3. DECADRON [Suspect]
     Dosage: 8 MG,4X/DAY
     Dates: start: 20080401, end: 20080523
  4. DILAUDID [Suspect]
     Dosage: UNK

REACTIONS (5)
  - MENTAL STATUS CHANGES [None]
  - NECK PAIN [None]
  - NEUTROPENIA [None]
  - PNEUMONIA [None]
  - STAPHYLOCOCCAL SEPSIS [None]
